FAERS Safety Report 24232141 (Version 1)
Quarter: 2024Q3

REPORT INFORMATION
  Report Type: Report from Study
  Country: US (occurrence: US)
  Receive Date: 20240821
  Receipt Date: 20240821
  Transmission Date: 20241016
  Serious: Yes (Hospitalization)
  Sender: EISAI
  Company Number: US-Eisai-EC-2024-172456

PATIENT
  Age: 44 Year
  Sex: Male
  Weight: 100.24 kg

DRUGS (18)
  1. LENVIMA [Suspect]
     Active Substance: LENVATINIB
     Indication: Renal cell carcinoma
     Dosage: MISSED A WEEK DUE TO A OUTPATIENT BIOPSY PROCEDURE IN FEB 2024
     Route: 048
     Dates: start: 20231127, end: 202407
  2. VILAZODONE HYDROCHLORIDE [Concomitant]
     Active Substance: VILAZODONE HYDROCHLORIDE
     Dosage: DOSE AND FREQUENCY UNKNOWN
  3. EVEROLIMUS [Concomitant]
     Active Substance: EVEROLIMUS
     Dosage: DOSE AND FREQUENCY UNKNOWN
  4. CLONAZEPAM [Concomitant]
     Active Substance: CLONAZEPAM
     Dosage: DOSE AND FREQUENCY UNKNOWN
  5. METOPROLOL SUCCINATE [Concomitant]
     Active Substance: METOPROLOL SUCCINATE
     Dosage: DOSE AND FREQUENCY UNKNOWN
  6. CYMBALTA [Concomitant]
     Active Substance: DULOXETINE HYDROCHLORIDE
     Dosage: DOSE AND FREQUENCY UNKNOWN
  7. HERBALS\TURMERIC [Concomitant]
     Active Substance: HERBALS\TURMERIC
     Dosage: DOSE AND FREQUENCY UNKNOWN
  8. LORAZEPAM [Concomitant]
     Active Substance: LORAZEPAM
     Dosage: DOSE AND FREQUENCY UNKNOWN
  9. LOSARTAN POTASSIUM [Concomitant]
     Active Substance: LOSARTAN POTASSIUM
     Dosage: DOSE AND FREQUENCY UNKNOWN
  10. LYRICA [Concomitant]
     Active Substance: PREGABALIN
     Dosage: DOSE AND FREQUENCY UNKNOWN
  11. OXYCODONE HYDROCHLORIDE [Concomitant]
     Active Substance: OXYCODONE HYDROCHLORIDE
     Dosage: DOSE AND FREQUENCY UNKNOWN
  12. METOPROLOL TARTRATE [Concomitant]
     Active Substance: METOPROLOL TARTRATE
     Dosage: DOSE AND FREQUENCY UNKNOWN
  13. MORPHINE SULFATE [Concomitant]
     Active Substance: MORPHINE SULFATE
     Dosage: DOSE AND FREQUENCY UNKNOWN
  14. DEXAMETHASONE [Concomitant]
     Active Substance: DEXAMETHASONE
     Dosage: DOSE AND FREQUENCY UNKNOWN
  15. XANAX [Concomitant]
     Active Substance: ALPRAZOLAM
     Dosage: DOSE AND FREQUENCY UNKNOWN
  16. BACTRIM [Concomitant]
     Active Substance: SULFAMETHOXAZOLE\TRIMETHOPRIM
     Dosage: DOSE AND FREQUENCY UNKNOWN
  17. PREDNISONE [Concomitant]
     Active Substance: PREDNISONE
     Dosage: DOSE AND FREQUENCY UNKNOWN
  18. CABOMETYX [Concomitant]
     Active Substance: CABOZANTINIB S-MALATE
     Dosage: DOSE AND FREQUENCY UNKNOWN

REACTIONS (1)
  - Pneumonitis [Unknown]

NARRATIVE: CASE EVENT DATE: 20240101
